FAERS Safety Report 9240463 (Version 1)
Quarter: 2013Q1

REPORT INFORMATION
  Report Type: Spontaneous
  Country: US (occurrence: None)
  Receive Date: 20121107
  Receipt Date: 20121107
  Transmission Date: 20140127
  Serious: No
  Sender: FDA-Public Use
  Company Number: 2012HGS-003876

PATIENT
  Age: 42 Year
  Sex: Female
  Weight: 66.23 kg

DRUGS (16)
  1. BENLYSTA [Suspect]
     Indication: SYSTEMIC LUPUS ERYTHEMATOSUS
     Dosage: 10 MG/KG, 1 IN 28 D, INTRAVENOUS
     Route: 042
     Dates: start: 20111209
  2. PREDNISONE (PREDNISONE) [Concomitant]
  3. CELLCEPT (MYCOPHENOLATE MOFETIL) [Concomitant]
  4. ALLEGRA [Concomitant]
  5. ALBUTEROL (SALBUTAMOL) [Concomitant]
  6. RESTASIS EYE DROP (CICLOSPORIN) [Concomitant]
  7. VITAMIN B12 (CYANOCOBALAMIN) [Concomitant]
  8. NYSTATIN (NYSTATIN) [Concomitant]
  9. ADRENAL REBUILDER SUPPLEMENT (ADRENAL COMPLEX) (GLYCYRRHIZA GLABRA ROOT, REHMANNIA GLUTINOSA RHIZOME) [Concomitant]
  10. MAGNESIUM (MAGNESIUM) [Concomitant]
  11. FISH OIL (FISH OIL) [Concomitant]
  12. MULTIVITAMIN (VIGRAN) (ERGOCALCIFEROL, ASCORBIC ACID, PYRIDOXINE HYDROCHLORIDE, THIAMINE HYDROCHLORIDE, RETINOL, RIBOFLAVIN, NICOTINAMIDE, CALCIUM PANTOTHENATE) [Concomitant]
  13. IBUPROFEN (IBUPROFEN) [Concomitant]
  14. DHEA SUPPLEMENT (PRASTERONE) [Concomitant]
  15. CO Q 10 (UBIDECARENONE) [Concomitant]
  16. PROGESTERONE CREAM (PROGESTERONE) [Concomitant]

REACTIONS (8)
  - Systemic lupus erythematosus [None]
  - Chest pain [None]
  - Arthralgia [None]
  - Somnolence [None]
  - Fatigue [None]
  - Helicobacter infection [None]
  - Nausea [None]
  - Vomiting [None]
